FAERS Safety Report 4996204-X (Version None)
Quarter: 2006Q2

REPORT INFORMATION
  Report Type: 
  Country: None (occurrence: None)
  Receive Date: 20060504
  Receipt Date: 20060426
  Transmission Date: 20061013
  Serious: Yes (Other)
  Sender: FDA-Public Use
  Company Number: 200610514BNE

PATIENT
  Age: 64 Year
  Sex: Male
  Weight: 75 kg

DRUGS (6)
  1. CIPROFLOXACIN [Suspect]
     Indication: LOWER RESPIRATORY TRACT INFECTION
     Dosage: 500 MG, BID, ORAL
     Route: 048
     Dates: start: 20060403, end: 20060405
  2. PREDNISOLONE [Concomitant]
  3. SALMETEROL [Concomitant]
  4. FLUTICASONE PROPIONATE [Concomitant]
  5. ATORVASTATIN CALCIUM [Concomitant]
  6. THEOPHYLLINE [Concomitant]

REACTIONS (2)
  - HALLUCINATION [None]
  - VERTIGO [None]
